FAERS Safety Report 7349945-3 (Version None)
Quarter: 2011Q1

REPORT INFORMATION
  Report Type: 
  Country: None (occurrence: None)
  Receive Date: 20110314
  Receipt Date: 20110307
  Transmission Date: 20110831
  Serious: Yes (Hospitalization, Other)
  Sender: FDA-Public Use
  Company Number: FR-ROCHE-568615

PATIENT
  Sex: Female
  Weight: 71 kg

DRUGS (4)
  1. ETIFOXINE [Suspect]
     Indication: ANXIETY
     Route: 048
     Dates: start: 20080422, end: 20080601
  2. PEGINTERFERON ALFA-2A [Suspect]
     Route: 058
     Dates: start: 20080128, end: 20080601
  3. RIBAVIRIN [Suspect]
     Route: 048
     Dates: start: 20080128, end: 20080601
  4. EPOETIN BETA [Suspect]
     Route: 058
     Dates: start: 20080128, end: 20080531

REACTIONS (2)
  - ERYTHEMA NODOSUM [None]
  - PULMONARY SARCOIDOSIS [None]
